FAERS Safety Report 24712765 (Version 1)
Quarter: 2024Q4

REPORT INFORMATION
  Report Type: Report from Study
  Country: US (occurrence: US)
  Receive Date: 20241209
  Receipt Date: 20241209
  Transmission Date: 20250115
  Serious: Yes (Other)
  Sender: BAYER HEALTHCARE PHARMACEUTICALS INC.
  Company Number: US-BAYER-2024A121235

PATIENT
  Age: 69 Year
  Sex: Female

DRUGS (3)
  1. ADEMPAS [Suspect]
     Active Substance: RIOCIGUAT
     Indication: Pulmonary arterial hypertension
     Dosage: UNK
     Route: 048
  2. ADEMPAS [Suspect]
     Active Substance: RIOCIGUAT
     Indication: Pulmonary arterial hypertension
     Dosage: 2.5 MG, TID
     Route: 048
     Dates: start: 202405
  3. ADEMPAS [Suspect]
     Active Substance: RIOCIGUAT
     Indication: Pulmonary arterial hypertension
     Dosage: 2.5 MG, TID
     Route: 048
     Dates: start: 202403

REACTIONS (8)
  - Vomiting [None]
  - Diarrhoea [Not Recovered/Not Resolved]
  - Dehydration [None]
  - Nausea [None]
  - Diarrhoea [None]
  - Frequent bowel movements [None]
  - Headache [None]
  - Constipation [None]

NARRATIVE: CASE EVENT DATE: 20240801
